FAERS Safety Report 6056894-X (Version None)
Quarter: 2009Q1

REPORT INFORMATION
  Report Type: 
  Country: None (occurrence: None)
  Receive Date: 20090129
  Receipt Date: 20090119
  Transmission Date: 20090719
  Serious: Yes (Hospitalization)
  Sender: FDA-Public Use
  Company Number: B0555011A

PATIENT
  Age: 46 Year
  Sex: Male

DRUGS (18)
  1. FORTUM [Suspect]
     Indication: DRUG USE FOR UNKNOWN INDICATION
     Route: 042
     Dates: start: 20080910, end: 20080915
  2. VFEND [Suspect]
     Indication: DRUG USE FOR UNKNOWN INDICATION
     Route: 065
     Dates: start: 20080910, end: 20080915
  3. PROGRAF [Suspect]
     Indication: DRUG USE FOR UNKNOWN INDICATION
     Route: 048
     Dates: start: 20080909, end: 20080913
  4. CELLCEPT [Suspect]
     Indication: DRUG USE FOR UNKNOWN INDICATION
     Route: 048
     Dates: start: 20080909
  5. NEXIUM [Concomitant]
     Indication: DRUG USE FOR UNKNOWN INDICATION
     Dosage: 20MG PER DAY
     Route: 048
     Dates: start: 20080909, end: 20080910
  6. LANSOPRAZOLE [Concomitant]
     Indication: DRUG USE FOR UNKNOWN INDICATION
     Dosage: 15MG PER DAY
     Route: 048
     Dates: start: 20080910, end: 20080919
  7. ZYVOXID [Concomitant]
     Route: 042
     Dates: start: 20080910, end: 20080917
  8. GENTAMICIN [Concomitant]
     Route: 065
  9. ANTIHYPERTENSIVE (UNSPECIFIED) [Concomitant]
     Route: 065
  10. ANTISPASMODIC (UNKNOWN) [Concomitant]
     Route: 065
  11. ANTIBIOTIC (UNKNOWN) [Concomitant]
     Route: 065
  12. ANTIVIRAL [Concomitant]
     Route: 065
  13. PROTON PUMP INHIBITOR [Concomitant]
     Route: 065
  14. SEDATIVE(UNKNOWN) [Concomitant]
     Route: 065
  15. HYPNOTICS (UNSPECIFIED) [Concomitant]
     Route: 065
  16. ANTICOAGULANTS (UNSPECIFIED) [Concomitant]
     Route: 065
  17. ANTALGIC [Concomitant]
     Route: 065
  18. ANTI-PSYCHOTIC MEDICATION [Concomitant]

REACTIONS (17)
  - AGITATION [None]
  - BODY TEMPERATURE INCREASED [None]
  - CHILLS [None]
  - CHOLESTASIS [None]
  - CONFUSIONAL STATE [None]
  - DISORIENTATION [None]
  - DRUG INTERACTION [None]
  - DRUG LEVEL INCREASED [None]
  - HALLUCINATION, AUDITORY [None]
  - HEPATOCELLULAR INJURY [None]
  - HYPERTHERMIA [None]
  - INFLAMMATION [None]
  - LEUKOCYTOSIS [None]
  - MYALGIA [None]
  - TACHYCARDIA [None]
  - THROMBOCYTHAEMIA [None]
  - TOXIC ENCEPHALOPATHY [None]
